FAERS Safety Report 15402831 (Version 1)
Quarter: 2018Q3

REPORT INFORMATION
  Report Type: Spontaneous
  Country: US (occurrence: US)
  Receive Date: 20180917
  Receipt Date: 20180917
  Transmission Date: 20181010
  Serious: Yes (Disabling)
  Sender: FDA-Public Use
  Company Number: None

PATIENT
  Age: 54 Year
  Sex: Male

DRUGS (8)
  1. CULTURELLE [Concomitant]
     Active Substance: LACTOBACILLUS RHAMNOSUS
  2. CLINDAMYCIN. [Suspect]
     Active Substance: CLINDAMYCIN
     Indication: INFECTION
     Dates: start: 20180901, end: 20180907
  3. SEROQUEL [Concomitant]
     Active Substance: QUETIAPINE FUMARATE
  4. KLONOPIN [Concomitant]
     Active Substance: CLONAZEPAM
  5. ACYCLOVIR. [Concomitant]
     Active Substance: ACYCLOVIR
  6. VITAMIN E [Concomitant]
     Active Substance: .ALPHA.-TOCOPHEROL
  7. FLOMAX [Concomitant]
     Active Substance: TAMSULOSIN HYDROCHLORIDE
  8. CLINDAMYCIN. [Suspect]
     Active Substance: CLINDAMYCIN
     Indication: TOOTH ABSCESS
     Dates: start: 20180901, end: 20180907

REACTIONS (4)
  - Malaise [None]
  - Abdominal discomfort [None]
  - Diarrhoea [None]
  - Tooth extraction [None]

NARRATIVE: CASE EVENT DATE: 20180901
